FAERS Safety Report 21784398 (Version 1)
Quarter: 2022Q4

REPORT INFORMATION
  Report Type: Report from Study
  Country: US (occurrence: US)
  Receive Date: 20221227
  Receipt Date: 20221227
  Transmission Date: 20230113
  Serious: No
  Sender: FDA-Public Use
  Company Number: US-ABBVIE-4213784

PATIENT
  Sex: Male

DRUGS (7)
  1. HUMIRA [Suspect]
     Active Substance: ADALIMUMAB
     Indication: Psoriatic arthropathy
     Route: 058
  2. LYRICA CAP 300MG [Concomitant]
     Indication: Product used for unknown indication
  3. CYCLOBENZAPR TAB 10MG [Concomitant]
     Indication: Product used for unknown indication
  4. ZYRTEC CHE 10MG [Concomitant]
     Indication: Product used for unknown indication
  5. MOBIC [Concomitant]
     Active Substance: MELOXICAM
     Indication: Product used for unknown indication
  6. SINGULAIR TAB 10MG [Concomitant]
     Indication: Product used for unknown indication
  7. HYDROCODONE- TAB 10-325MG [Concomitant]
     Indication: Product used for unknown indication

REACTIONS (1)
  - Adverse drug reaction [Recovered/Resolved]
